FAERS Safety Report 11164011 (Version 4)
Quarter: 2016Q1

REPORT INFORMATION
  Report Type: Spontaneous
  Country: US (occurrence: US)
  Receive Date: 20150604
  Receipt Date: 20160216
  Transmission Date: 20160525
  Serious: Yes (Hospitalization, Other)
  Sender: FDA-Public Use
  Company Number: US-PFIZER INC-2015184975

PATIENT
  Age: 56 Year
  Sex: Female
  Weight: 73 kg

DRUGS (6)
  1. METHYLPREDNISOLONE. [Concomitant]
     Active Substance: METHYLPREDNISOLONE
     Indication: URINARY TRACT INFLAMMATION
     Dosage: 4 MG, UNK
     Dates: start: 201512, end: 201512
  2. XELJANZ [Suspect]
     Active Substance: TOFACITINIB CITRATE
     Dosage: 5 MG, 2X/DAY
     Dates: start: 201502
  3. ATORVASTATIN [Concomitant]
     Active Substance: ATORVASTATIN
     Indication: BLOOD CHOLESTEROL
     Dosage: 10 MG, 1X/DAY
  4. TRAZODONE [Concomitant]
     Active Substance: TRAZODONE HYDROCHLORIDE
     Indication: SLEEP DISORDER
     Dosage: 50 MG, DAILY
     Dates: start: 2005
  5. ACETAMINOPHEN WITH CODEINE 3 [Concomitant]
     Active Substance: ACETAMINOPHEN\CODEINE PHOSPHATE
     Indication: PAIN
     Dosage: UNK, AS NEEDED
     Dates: start: 201512, end: 201512
  6. XELJANZ [Suspect]
     Active Substance: TOFACITINIB CITRATE
     Indication: RHEUMATOID ARTHRITIS
     Dosage: 10 MG, 2X/DAY
     Dates: start: 201501

REACTIONS (9)
  - Oropharyngeal pain [Recovered/Resolved]
  - Pyrexia [Not Recovered/Not Resolved]
  - Diverticulitis [Unknown]
  - Nephrolithiasis [Unknown]
  - Blood cholesterol increased [Recovered/Resolved]
  - Urinary tract infection [Recovered/Resolved]
  - Chest discomfort [Not Recovered/Not Resolved]
  - Cough [Recovered/Resolved]
  - Pain [Not Recovered/Not Resolved]

NARRATIVE: CASE EVENT DATE: 2015
